FAERS Safety Report 7287290-5 (Version None)
Quarter: 2011Q1

REPORT INFORMATION
  Report Type: 
  Country: None (occurrence: None)
  Receive Date: 20110211
  Receipt Date: 20110127
  Transmission Date: 20110831
  Serious: Yes (Life-Threatening, Hospitalization, Other)
  Sender: FDA-Public Use
  Company Number: US-ROCHE-751318

PATIENT
  Sex: Female
  Weight: 49 kg

DRUGS (5)
  1. ORENCIA [Concomitant]
     Indication: RHEUMATOID ARTHRITIS
     Route: 042
  2. CELEBREX [Concomitant]
     Indication: RHEUMATOID ARTHRITIS
     Route: 048
  3. AZULFIDINE [Concomitant]
     Indication: RHEUMATOID ARTHRITIS
     Route: 048
  4. ACTEMRA [Suspect]
     Route: 042
     Dates: start: 20101221
  5. ACTEMRA [Suspect]
     Indication: RHEUMATOID ARTHRITIS
     Dosage: FORM; INFUSION
     Route: 042
     Dates: start: 20101115

REACTIONS (8)
  - LOSS OF CONSCIOUSNESS [None]
  - HYPOTENSION [None]
  - TACHYCARDIA [None]
  - DYSPNOEA [None]
  - ANAPHYLACTIC REACTION [None]
  - HYPERHIDROSIS [None]
  - PARAESTHESIA [None]
  - HYPERTENSION [None]
